FAERS Safety Report 9487034 (Version 1)
Quarter: 2013Q3

REPORT INFORMATION
  Report Type: Spontaneous
  Country: NL (occurrence: NL)
  Receive Date: 20130829
  Receipt Date: 20130829
  Transmission Date: 20140515
  Serious: Yes (Life-Threatening, Hospitalization)
  Sender: FDA-Public Use
  Company Number: PHHY2013NL092886

PATIENT
  Age: 41 Year
  Sex: Male
  Weight: 78 kg

DRUGS (6)
  1. CLOZAPINE [Suspect]
     Indication: ABNORMAL BEHAVIOUR
     Dosage: 25 MG
     Dates: start: 20120706, end: 20130305
  2. VALPROIC ACID [Suspect]
     Indication: MOOD SWINGS
     Dosage: 150 MG
     Dates: start: 1995
  3. VALPROIC ACID [Suspect]
     Indication: MOOD SWINGS
  4. LAMOTRIGINE [Concomitant]
     Dosage: 5 MG
     Dates: start: 2005
  5. LACTULOSE [Concomitant]
     Dosage: 670 MG / ML (500MG/G)
  6. LORAZEPAM [Concomitant]
     Dosage: 1 MG

REACTIONS (3)
  - Agranulocytosis [Recovered/Resolved]
  - Malaise [Recovered/Resolved]
  - Pyrexia [Recovered/Resolved]
